FAERS Safety Report 21354568 (Version 7)
Quarter: 2022Q4

REPORT INFORMATION
  Report Type: Spontaneous
  Country: US (occurrence: US)
  Receive Date: 20220920
  Receipt Date: 20221027
  Transmission Date: 20230113
  Serious: No
  Sender: FDA-Public Use
  Company Number: US-PFIZER INC-PV202200066611

PATIENT
  Age: 63 Year
  Sex: Female

DRUGS (1)
  1. IBRANCE [Suspect]
     Active Substance: PALBOCICLIB
     Dosage: UNK

REACTIONS (7)
  - Product dose omission in error [Unknown]
  - Oral pain [Recovered/Resolved]
  - Stomatitis [Recovered/Resolved]
  - Gingival pain [Unknown]
  - Hyperaesthesia teeth [Unknown]
  - Arthritis [Unknown]
  - Oedema peripheral [Unknown]
